FAERS Safety Report 9774330 (Version 2)
Quarter: 2014Q1

REPORT INFORMATION
  Report Type: Report from Study
  Country: CA (occurrence: CA)
  Receive Date: 20131220
  Receipt Date: 20140107
  Transmission Date: 20141002
  Serious: Yes (Hospitalization)
  Sender: FDA-Public Use
  Company Number: CA-ROCHE-1322414

PATIENT
  Sex: Female

DRUGS (16)
  1. RITUXAN [Suspect]
     Indication: RHEUMATOID ARTHRITIS
     Dosage: FREQUENCY: DAY 1 AND 15
     Route: 042
     Dates: start: 20131128, end: 20131128
  2. AZATHIOPRINE [Concomitant]
  3. METOCLOPRAMIDE [Concomitant]
  4. WARFARIN [Concomitant]
  5. QUINIDINE [Concomitant]
  6. RANITIDINE [Concomitant]
  7. FUROSEMIDE [Concomitant]
  8. QUETIAPINE [Concomitant]
  9. OXAZEPAM [Concomitant]
  10. QUININE [Concomitant]
  11. BRICANYL [Concomitant]
     Indication: CHRONIC OBSTRUCTIVE PULMONARY DISEASE
     Route: 065
  12. SYMBICORT [Concomitant]
     Indication: CHRONIC OBSTRUCTIVE PULMONARY DISEASE
     Route: 065
  13. ATROVENT [Concomitant]
     Indication: CHRONIC OBSTRUCTIVE PULMONARY DISEASE
     Route: 065
  14. DIPHENHYDRAMINE HCL [Concomitant]
     Indication: PREMEDICATION
     Route: 048
     Dates: start: 20131128, end: 20131128
  15. ACETAMINOPHEN [Concomitant]
     Indication: PREMEDICATION
     Route: 048
     Dates: start: 20131128, end: 20131128
  16. PREDNISONE [Concomitant]
     Indication: PREMEDICATION
     Route: 048
     Dates: start: 20131128, end: 20131128

REACTIONS (2)
  - Chronic obstructive pulmonary disease [Unknown]
  - General physical health deterioration [Unknown]
